FAERS Safety Report 15348557 (Version 1)
Quarter: 2018Q3

REPORT INFORMATION
  Report Type: Spontaneous
  Country: US (occurrence: US)
  Receive Date: 20180904
  Receipt Date: 20180904
  Transmission Date: 20181010
  Serious: No
  Sender: FDA-Public Use
  Company Number: US-OREXO US, INC.-ORE201803-000014

PATIENT
  Sex: Male

DRUGS (2)
  1. BUPRENORPHINE / NALOXONE [Suspect]
     Active Substance: BUPRENORPHINE\NALOXONE
  2. ZUBSOLV [Suspect]
     Active Substance: BUPRENORPHINE HYDROCHLORIDE\NALOXONE HYDROCHLORIDE

REACTIONS (5)
  - Feeling abnormal [Unknown]
  - Vomiting [Recovering/Resolving]
  - Retching [Recovering/Resolving]
  - Piloerection [Recovering/Resolving]
  - Wrong technique in product usage process [Recovering/Resolving]
